FAERS Safety Report 18397217 (Version 1)
Quarter: 2020Q4

REPORT INFORMATION
  Report Type: Spontaneous
  Country: US (occurrence: US)
  Receive Date: 20201016
  Receipt Date: 20201016
  Transmission Date: 20210114
  Serious: No
  Sender: FDA-Public Use
  Company Number: None

PATIENT
  Age: 87 Year
  Sex: Male
  Weight: 79 kg

DRUGS (1)
  1. SINCALIDE. [Suspect]
     Active Substance: SINCALIDE
     Indication: DIAGNOSTIC PROCEDURE
     Dosage: ?          OTHER FREQUENCY:ONCE;?
     Route: 041
     Dates: start: 20201012, end: 20201012

REACTIONS (2)
  - Infusion related reaction [None]
  - Infusion site swelling [None]

NARRATIVE: CASE EVENT DATE: 20201012
